FAERS Safety Report 9238306 (Version 1)
Quarter: 2013Q2

REPORT INFORMATION
  Report Type: Spontaneous
  Country: CN (occurrence: None)
  Receive Date: 20130416
  Receipt Date: 20130416
  Transmission Date: 20140414
  Serious: Yes (Other)
  Sender: FDA-Public Use
  Company Number: IPC201304-000135

PATIENT
  Age: 21 Year
  Sex: Male

DRUGS (3)
  1. METOPROLOL TARTRATE [Suspect]
     Indication: HYPERTENSION
     Route: 048
  2. L-AMLODIPINE (AMLODIPINE)(AMLODIPINE) [Concomitant]
  3. ISOSORBIDE MONONITRATE [Concomitant]

REACTIONS (9)
  - Psychotic disorder [None]
  - Delirium [None]
  - Fear [None]
  - Anxiety [None]
  - Confusional state [None]
  - Disorientation [None]
  - Incoherent [None]
  - Panic attack [None]
  - Hallucination, auditory [None]
